FAERS Safety Report 23576111 (Version 1)
Quarter: 2024Q1

REPORT INFORMATION
  Report Type: Spontaneous
  Country: US (occurrence: US)
  Receive Date: 20240228
  Receipt Date: 20240228
  Transmission Date: 20240410
  Serious: No
  Sender: FDA-Public Use
  Company Number: US-SA-SAC20240227000069

PATIENT
  Sex: Female
  Weight: 62 kg

DRUGS (27)
  1. DUPIXENT [Suspect]
     Active Substance: DUPILUMAB
     Indication: Chronic rhinosinusitis with nasal polyps
     Dosage: 300 MG, QOW
     Route: 058
     Dates: start: 20220311
  2. SUMATRIPTAN [Concomitant]
     Active Substance: SUMATRIPTAN
  3. ALENDRONATE SODIUM [Concomitant]
     Active Substance: ALENDRONATE SODIUM
  4. IRON [Concomitant]
     Active Substance: IRON
  5. ALPRAZOLAM [Concomitant]
     Active Substance: ALPRAZOLAM
  6. PREDNISONE [Concomitant]
     Active Substance: PREDNISONE
  7. MELOXICAM [Concomitant]
     Active Substance: MELOXICAM
  8. DEXLANSOPRAZOLE [Concomitant]
     Active Substance: DEXLANSOPRAZOLE
  9. HYDROCODONE [Concomitant]
     Active Substance: HYDROCODONE
     Dosage: 25 MG
  10. NITROFURANTOIN [Concomitant]
     Active Substance: NITROFURANTOIN
  11. BUDESONIDE [Concomitant]
     Active Substance: BUDESONIDE
  12. ONDANSETRON [Concomitant]
     Active Substance: ONDANSETRON
  13. EPINEPHRINE [Concomitant]
     Active Substance: EPINEPHRINE
  14. LIDOCAINE AND PRILOCAINE [Concomitant]
     Active Substance: LIDOCAINE\PRILOCAINE
  15. METHOCARBAMOL [Concomitant]
     Active Substance: METHOCARBAMOL
  16. METOCLOPRAMIDE HYDROCHLORIDE [Concomitant]
     Active Substance: METOCLOPRAMIDE HYDROCHLORIDE
  17. NARATRIPTAN HYDROCHLORIDE [Concomitant]
     Active Substance: NARATRIPTAN HYDROCHLORIDE
  18. EMGALITY [Concomitant]
     Active Substance: GALCANEZUMAB-GNLM
  19. AREXVY [Concomitant]
     Active Substance: RECOMBINANT RESPIRATORY SYNCYTIAL VIRUS PRE-FUSION F PROTEIN
  20. VILAZODONE HYDROCHLORIDE [Concomitant]
     Active Substance: VILAZODONE HYDROCHLORIDE
  21. CYANOCOBALAMIN [Concomitant]
     Active Substance: CYANOCOBALAMIN
  22. MYRBETRIQ [Concomitant]
     Active Substance: MIRABEGRON
  23. CEFDINIR [Concomitant]
     Active Substance: CEFDINIR
  24. RESTASIS [Concomitant]
     Active Substance: CYCLOSPORINE
  25. BREO ELLIPTA [Concomitant]
     Active Substance: FLUTICASONE FUROATE\VILANTEROL TRIFENATATE
  26. BACLOFEN [Concomitant]
     Active Substance: BACLOFEN
  27. FLUCONAZOLE [Concomitant]
     Active Substance: FLUCONAZOLE

REACTIONS (1)
  - Infection [Unknown]
